FAERS Safety Report 18174677 (Version 1)
Quarter: 2020Q3

REPORT INFORMATION
  Report Type: Spontaneous
  Country: US (occurrence: US)
  Receive Date: 20200820
  Receipt Date: 20200820
  Transmission Date: 20201103
  Serious: No
  Sender: FDA-Public Use
  Company Number: US-PFIZER INC-2020321269

PATIENT
  Age: 61 Year
  Sex: Male

DRUGS (9)
  1. EUTHYROX [Concomitant]
     Active Substance: LEVOTHYROXINE SODIUM
     Dosage: UNK
  2. VITAMIN D3 [Concomitant]
     Active Substance: CHOLECALCIFEROL
     Dosage: UNK
  3. DIPHENHYDRAMINE. [Concomitant]
     Active Substance: DIPHENHYDRAMINE
     Dosage: UNK
  4. FISH OIL [Concomitant]
     Active Substance: FISH OIL
     Dosage: UNK
  5. VITAMIN C [Concomitant]
     Active Substance: ASCORBIC ACID
     Dosage: UNK
  6. AMLODIPINE [Concomitant]
     Active Substance: AMLODIPINE BESYLATE
     Dosage: UNK
  7. LOSARTAN. [Concomitant]
     Active Substance: LOSARTAN
     Dosage: UNK
  8. INLYTA [Suspect]
     Active Substance: AXITINIB
     Indication: RENAL CELL CARCINOMA
     Dosage: 3 MG, 2X/DAY (ONCE EVERY 12 HOURS)
     Route: 048
     Dates: start: 201910
  9. PREDNISONE. [Concomitant]
     Active Substance: PREDNISONE
     Dosage: UNK

REACTIONS (2)
  - Hypogeusia [Unknown]
  - Dry mouth [Unknown]
